FAERS Safety Report 9127937 (Version 2)
Quarter: 2013Q2

REPORT INFORMATION
  Report Type: Spontaneous
  Country: US (occurrence: US)
  Receive Date: 20130228
  Receipt Date: 20130528
  Transmission Date: 20140414
  Serious: No
  Sender: FDA-Public Use
  Company Number: US-BRISTOL-MYERS SQUIBB COMPANY-17201047

PATIENT
  Age: 63 Year
  Sex: Female
  Weight: 100.22 kg

DRUGS (3)
  1. KOMBIGLYZE XR [Suspect]
     Indication: TYPE 2 DIABETES MELLITUS
     Dosage: KOMBIGLYZE XR 5/1000 MG
     Dates: start: 201207
  2. ACTOS [Suspect]
  3. GLIPIRIDE [Suspect]

REACTIONS (1)
  - Weight decreased [Unknown]
